FAERS Safety Report 20093733 (Version 1)
Quarter: 2021Q4

REPORT INFORMATION
  Report Type: Spontaneous
  Country: FR (occurrence: FR)
  Receive Date: 20211121
  Receipt Date: 20211121
  Transmission Date: 20220303
  Serious: Yes (Hospitalization)
  Sender: FDA-Public Use
  Company Number: FR-NOVARTISPH-NVSC2021FR264145

PATIENT
  Age: 51 Year
  Sex: Female
  Weight: 54 kg

DRUGS (8)
  1. ZOLEDRONIC ACID [Suspect]
     Active Substance: ZOLEDRONIC ACID
     Indication: Osteosarcoma
     Dosage: 4 MG, CYCLIC (REGIMEN 1 CUMULATIVE DOSE OF 4 MG SINCE 1ST ADMINISTRATION)
     Route: 065
     Dates: start: 20151006
  2. METHOTREXATE SODIUM [Suspect]
     Active Substance: METHOTREXATE SODIUM
     Indication: Osteosarcoma
     Dosage: 5 MG (CUMULATIVE DOSE OF 40 MG SINCE 1ST ADMINISTRATION )
     Route: 048
     Dates: start: 20151005
  3. METHOTREXATE SODIUM [Suspect]
     Active Substance: METHOTREXATE SODIUM
     Dosage: 5 MG
     Route: 048
     Dates: start: 20151025
  4. SIROLIMUS [Suspect]
     Active Substance: SIROLIMUS
     Indication: Osteosarcoma
     Dosage: 6 MG (CUMULATIVE DOSE 168 MG)
     Route: 065
     Dates: start: 20151005
  5. SIROLIMUS [Suspect]
     Active Substance: SIROLIMUS
     Dosage: 6 MG
     Route: 065
     Dates: start: 20151029
  6. CYCLOPHOSPHAMIDE [Suspect]
     Active Substance: CYCLOPHOSPHAMIDE
     Indication: Osteosarcoma
     Dosage: 100 MG, CYCLIC (CUMULATIVE DOSE OF 1400 MG SINCE 1ST ADMINISTRATION)
     Route: 048
     Dates: start: 20151005
  7. CYCLOPHOSPHAMIDE [Suspect]
     Active Substance: CYCLOPHOSPHAMIDE
     Dosage: 100 MG, CYCLIC (REGIMEN 1)
     Route: 048
     Dates: start: 20151029
  8. PAROXETINE HYDROCHLORIDE [Concomitant]
     Active Substance: PAROXETINE HYDROCHLORIDE
     Indication: Depression
     Dosage: UNK
     Route: 048
     Dates: start: 20151023

REACTIONS (1)
  - Musculoskeletal chest pain [Recovered/Resolved]

NARRATIVE: CASE EVENT DATE: 20151029
